FAERS Safety Report 6437232-7 (Version None)
Quarter: 2009Q4

REPORT INFORMATION
  Report Type: 
  Country: None (occurrence: None)
  Receive Date: 20091112
  Receipt Date: 20091102
  Transmission Date: 20100525
  Serious: Yes (Other)
  Sender: FDA-Public Use
  Company Number: CA-BAYER-200938116NA

PATIENT
  Age: 34 Year
  Sex: Female

DRUGS (1)
  1. YAZ [Suspect]
     Indication: CONTRACEPTION
     Route: 048
     Dates: start: 20091001

REACTIONS (5)
  - HEADACHE [None]
  - HYPOAESTHESIA [None]
  - METRORRHAGIA [None]
  - MUSCLE SPASMS [None]
  - VISUAL IMPAIRMENT [None]
